FAERS Safety Report 5046752-1 (Version None)
Quarter: 2006Q3

REPORT INFORMATION
  Report Type: 
  Country: None (occurrence: None)
  Receive Date: 20060705
  Receipt Date: 20060705
  Transmission Date: 20061208
  Serious: Yes (Hospitalization)
  Sender: FDA-Public Use
  Company Number: None

PATIENT
  Age: 60 Year
  Sex: Male
  Weight: 88.4514 kg

DRUGS (13)
  1. LISINOPRIL [Suspect]
     Indication: HYPERTENSION
     Dosage: 5 MG -1/2 TAB- DAILY PO
     Route: 048
     Dates: start: 20060127, end: 20060130
  2. ALBUTEROL SPIROS [Concomitant]
  3. ASPIRIN [Concomitant]
  4. ATENOLOL [Concomitant]
  5. CLONAZEPAM [Concomitant]
  6. FLUNISOLIDE [Concomitant]
  7. HYDROCHLOROTHIAZIDE [Concomitant]
  8. HYDROCODONE [Concomitant]
  9. OMEPRAZOLE [Concomitant]
  10. POTASSIUM CITRATED [Concomitant]
  11. SERTRALINE [Concomitant]
  12. SIMVASTATIN [Concomitant]
  13. TRAZODONE HCL [Concomitant]

REACTIONS (1)
  - ANGIONEUROTIC OEDEMA [None]
